FAERS Safety Report 5147725-0 (Version None)
Quarter: 2006Q4

REPORT INFORMATION
  Report Type: 
  Country: None (occurrence: None)
  Receive Date: 20060915
  Receipt Date: 20060808
  Transmission Date: 20070319
  Serious: No
  Sender: FDA-Public Use
  Company Number: 2006RL000284

PATIENT
  Sex: Female

DRUGS (1)
  1. OMACOR [Suspect]
     Indication: BLOOD TRIGLYCERIDES INCREASED
     Dosage: 2 GM;BID;PO
     Route: 048
     Dates: start: 20060101, end: 20060701

REACTIONS (4)
  - FOOD ALLERGY [None]
  - LIP SWELLING [None]
  - SWELLING FACE [None]
  - THERAPEUTIC RESPONSE UNEXPECTED [None]
